FAERS Safety Report 17424172 (Version 1)
Quarter: 2020Q1

REPORT INFORMATION
  Report Type: Spontaneous
  Country: FR (occurrence: FR)
  Receive Date: 20200217
  Receipt Date: 20200217
  Transmission Date: 20200409
  Serious: Yes (Hospitalization)
  Sender: FDA-Public Use
  Company Number: FR-ORION CORPORATION ORION PHARMA-19_00007075

PATIENT
  Age: 66 Year
  Sex: Male
  Weight: 72 kg

DRUGS (3)
  1. METHOTREXATE (TRADE NAME UNKNOWN) [Suspect]
     Active Substance: METHOTREXATE
     Dosage: PO 10 THEN 15MG / WEEK FROM 27/06, THEN SC FROM 08/08 (15 THEN 20MG)
     Route: 048
     Dates: start: 20190627, end: 201908
  2. IMFINZI [Suspect]
     Active Substance: DURVALUMAB
     Indication: LUNG NEOPLASM MALIGNANT
     Route: 041
     Dates: start: 20190507, end: 20190716
  3. METHOTREXATE (TRADE NAME UNKNOWN) [Suspect]
     Active Substance: METHOTREXATE
     Indication: RHEUMATOID ARTHRITIS
     Dosage: PO 10 THEN 15MG / WEEK FROM 27/06, THEN SC FROM 08/08 (15 THEN 20MG)
     Route: 048
     Dates: start: 20190613

REACTIONS (3)
  - Pyrexia [Recovered/Resolved]
  - Herpes simplex [Recovered/Resolved]
  - Lung disorder [Recovering/Resolving]

NARRATIVE: CASE EVENT DATE: 201907
